FAERS Safety Report 9994343 (Version 2)
Quarter: 2014Q1

REPORT INFORMATION
  Report Type: Report from Study
  Country: CA (occurrence: CA)
  Receive Date: 20140311
  Receipt Date: 20140311
  Transmission Date: 20141002
  Serious: Yes (Other)
  Sender: FDA-Public Use
  Company Number: CA-ROCHE-1177767

PATIENT
  Age: 79 Year
  Sex: Male
  Weight: 61.2 kg

DRUGS (12)
  1. RITUXAN [Suspect]
     Indication: RHEUMATOID ARTHRITIS
     Route: 042
     Dates: start: 20100902, end: 20130131
  2. ADALAT [Concomitant]
     Indication: BLOOD PRESSURE
  3. PREDNISONE [Concomitant]
  4. MELOXICAM [Concomitant]
  5. ASPIRIN [Concomitant]
  6. PARIET [Concomitant]
  7. VITAMIN C [Concomitant]
  8. VITAMIN E [Concomitant]
  9. VITAMIN B12 [Concomitant]
  10. DIPHENHYDRAMINE HCL [Concomitant]
     Indication: PREMEDICATION
     Route: 048
     Dates: start: 20100902
  11. ACETAMINOPHEN [Concomitant]
     Indication: PREMEDICATION
     Route: 048
     Dates: start: 20100902
  12. METHYLPREDNISOLONE [Concomitant]
     Indication: PREMEDICATION
     Route: 042
     Dates: start: 20100902

REACTIONS (4)
  - VIIth nerve paralysis [Unknown]
  - Scoliosis [Not Recovered/Not Resolved]
  - Nasopharyngitis [Recovering/Resolving]
  - Weight decreased [Not Recovered/Not Resolved]
